FAERS Safety Report 6851954-5 (Version None)
Quarter: 2010Q3

REPORT INFORMATION
  Report Type: 
  Country: None (occurrence: None)
  Receive Date: 20100717
  Receipt Date: 20071101
  Transmission Date: 20110219
  Serious: No
  Sender: FDA-Public Use
  Company Number: US-PFIZER INC-2007094163

PATIENT
  Sex: Male

DRUGS (1)
  1. CHANTIX [Suspect]
     Indication: SMOKING CESSATION THERAPY
     Dates: start: 20070829, end: 20071026

REACTIONS (4)
  - ADVERSE DRUG REACTION [None]
  - AMNESIA [None]
  - HEADACHE [None]
  - WEIGHT INCREASED [None]
